FAERS Safety Report 6539639-6 (Version None)
Quarter: 2010Q1

REPORT INFORMATION
  Report Type: 
  Country: None (occurrence: None)
  Receive Date: 20100115
  Receipt Date: 20100107
  Transmission Date: 20100710
  Serious: Yes (Life-Threatening, Other)
  Sender: FDA-Public Use
  Company Number: JP-PFIZER INC-2009180856

PATIENT
  Age: 58 Year
  Sex: Female

DRUGS (6)
  1. AMLODIPINE [Suspect]
     Dosage: 5 MG, UNK
     Route: 048
     Dates: start: 20090304
  2. PAXIL [Suspect]
     Dosage: 8 DF, UNK
     Route: 048
     Dates: start: 20090304
  3. THYRADIN-S [Suspect]
     Indication: HYPERTHYROIDISM
     Dosage: 128 DF, UNK
     Route: 048
     Dates: start: 20090304
  4. HIRNAMIN [Suspect]
     Dosage: 4 DF, UNK
     Route: 048
     Dates: start: 20090304
  5. MEILAX [Suspect]
     Dosage: 7 DF, UNK
     Route: 048
     Dates: start: 20090304
  6. ZYPREXA [Suspect]
     Dosage: 10 DF, UNK
     Route: 048
     Dates: start: 20090304

REACTIONS (5)
  - ALTERED STATE OF CONSCIOUSNESS [None]
  - BLOOD PRESSURE DECREASED [None]
  - MULTIPLE DRUG OVERDOSE [None]
  - SUICIDE ATTEMPT [None]
  - TACHYCARDIA [None]
